FAERS Safety Report 6913632-3 (Version None)
Quarter: 2010Q3

REPORT INFORMATION
  Report Type: 
  Country: None (occurrence: None)
  Receive Date: 20100719
  Receipt Date: 20090318
  Transmission Date: 20110219
  Serious: No
  Sender: FDA-Public Use
  Company Number: 2009-01055

PATIENT
  Age: 67 Year
  Sex: Female
  Weight: 55.3388 kg

DRUGS (5)
  1. ZICAM COLD REMEDY GEL SWABS [Suspect]
     Dosage: 4 DOSES X 1 DAY
     Dates: start: 20081229, end: 20081230
  2. LISINOPRIL [Concomitant]
  3. METFORMIN [Concomitant]
  4. CALCIUM WITH VITAMIN D [Concomitant]
  5. ESTER C [Concomitant]

REACTIONS (1)
  - ANOSMIA [None]
